FAERS Safety Report 6431651-0 (Version None)
Quarter: 2009Q4

REPORT INFORMATION
  Report Type: 
  Country: None (occurrence: None)
  Receive Date: 20091103
  Receipt Date: 20091019
  Transmission Date: 20100525
  Serious: Yes (Death, Hospitalization)
  Sender: FDA-Public Use
  Company Number: 02100-JPN-08-0102

PATIENT
  Age: 72 Year
  Sex: Female
  Weight: 55 kg

DRUGS (25)
  1. ASPIRIN [Suspect]
     Indication: CEREBRAL INFARCTION
     Dosage: 81 MG, QD ORAL
     Route: 048
     Dates: start: 20060908, end: 20070322
  2. PLETAL [Suspect]
     Indication: CEREBRAL INFARCTION
     Dosage: 100 MG, BID ORAL
     Route: 048
     Dates: start: 20070608, end: 20080106
  3. DEPAS (ETIZOLAM) TABLET [Suspect]
     Dosage: 0.5 MG, TID; ORAL 1 MG, QD; ORAL
     Route: 048
     Dates: start: 20070706, end: 20080106
  4. DEPAS (ETIZOLAM) TABLET [Suspect]
     Dosage: 0.5 MG, TID; ORAL 1 MG, QD; ORAL
     Route: 048
     Dates: start: 20060725
  5. ROHYPNOL (FLUNITRAZEPAM) TABLET [Suspect]
     Dosage: 1 MG, QD; ORAL
     Route: 048
     Dates: start: 20070706, end: 20080106
  6. RESLIN (TRAZODONE HYDROCHLORIDE) TABLET [Suspect]
     Dosage: 25 MG, QD; ORAL
     Route: 048
     Dates: start: 20060708, end: 20080106
  7. BASEN OD (VOGLIBOSE) TABLET 0.3 MG [Suspect]
     Dosage: 0.3 MG,TID; ORAL
     Route: 048
     Dates: start: 20060725, end: 20080106
  8. GLAKAY (MENATETRENONE) CAPSULE,15MG [Suspect]
     Dosage: 15 MG, QD; ORAL
     Route: 048
     Dates: start: 20060818, end: 20070322
  9. GLAKAY (MENATETRENONE) CAPSULE,15MG [Suspect]
     Dosage: 15 MG, QD; ORAL
     Route: 048
     Dates: start: 20070330, end: 20080106
  10. VOLTAREN [Suspect]
     Dosage: 25 MG, TID; ORAL 25 MG, QD; ORAL
     Route: 048
     Dates: start: 20060907, end: 20070322
  11. VOLTAREN [Suspect]
     Dosage: 25 MG, TID; ORAL 25 MG, QD; ORAL
     Route: 048
     Dates: start: 20070706, end: 20080106
  12. BONALON 5MG (ALENDRONATE SODIUM HYDRATE) TABLET [Suspect]
     Dosage: ORAL 5MG,QD, ORAL
     Route: 048
     Dates: start: 20060908, end: 20070322
  13. BONALON 5MG (ALENDRONATE SODIUM HYDRATE) TABLET [Suspect]
     Dosage: ORAL 5MG,QD, ORAL
     Route: 048
     Dates: start: 20070330, end: 20080106
  14. GASTER D (FAMOTIDINE) TABLET, 20 MG [Suspect]
     Dosage: 20 MG, BID; ORAL 10 MG, BID; ORAL
     Route: 048
     Dates: start: 20070329, end: 20080106
  15. GASTER D (FAMOTIDINE) TABLET, 20 MG [Suspect]
     Dosage: 20 MG, BID; ORAL 10 MG, BID; ORAL
     Route: 048
     Dates: start: 20060907
  16. KETOPROFEN [Suspect]
     Dosage: 20 MG, QD; TOPICAL
     Route: 061
     Dates: start: 20060907, end: 20080106
  17. ACTOS [Suspect]
     Dosage: 15 MG, QD; ORAL 30 MG, QD; ORAL
     Route: 048
     Dates: start: 20070706, end: 20080106
  18. ACTOS [Suspect]
     Dosage: 15 MG, QD; ORAL 30 MG, QD; ORAL
     Route: 048
     Dates: start: 20060929
  19. STARSIS (NATEGLINIDE) TABLET [Suspect]
     Dosage: 30 MG, TID; ORAL 90 MG, TID; ORAL
     Route: 048
     Dates: start: 20070706, end: 20080106
  20. STARSIS (NATEGLINIDE) TABLET [Suspect]
     Dosage: 30 MG, TID; ORAL 90 MG, TID; ORAL
     Route: 048
     Dates: start: 20070125, end: 20080106
  21. BAYASPIRIN (ASPIRIN) 100 MG [Suspect]
     Indication: CEREBRAL INFARCTION
     Dosage: 100 MG, BID; ORAL
     Route: 048
     Dates: start: 20070322, end: 20080107
  22. MUCOSOLVAN (AMBROXOL HYDROCHLORIDE) CAPSULE [Suspect]
     Indication: PRODUCTIVE COUGH
     Dosage: 45 MG, QD; ORAL
     Route: 048
     Dates: start: 20070831, end: 20080106
  23. CRAVIT (LEVOFLOXACIN) EYE DROPS [Suspect]
     Indication: EYE DISCHARGE
     Dosage: GTT OS, BID; OPTHALMIC
     Route: 047
     Dates: start: 20070831, end: 20080106
  24. ASPIRIN [Suspect]
  25. GLIMICRON (GLICLAZIDE) TABLET [Concomitant]

REACTIONS (9)
  - ABASIA [None]
  - AKINESIA [None]
  - ALOPECIA [None]
  - CEREBRAL INFARCTION [None]
  - NASOPHARYNGITIS [None]
  - PANCREATIC CARCINOMA [None]
  - PANCREATIC DUCT STENOSIS [None]
  - PYREXIA [None]
  - SENSATION OF HEAVINESS [None]
